FAERS Safety Report 7270449-0 (Version None)
Quarter: 2011Q1

REPORT INFORMATION
  Report Type: 
  Country: None (occurrence: None)
  Receive Date: 20110202
  Receipt Date: 20110125
  Transmission Date: 20110831
  Serious: Yes (Other)
  Sender: FDA-Public Use
  Company Number: US-BRISTOL-MYERS SQUIBB COMPANY-15509979

PATIENT
  Age: 62 Year
  Sex: Female

DRUGS (1)
  1. BUSPAR [Suspect]
     Dates: start: 20080301, end: 20081001

REACTIONS (6)
  - HYPOPHAGIA [None]
  - MENTAL STATUS CHANGES [None]
  - LOSS OF CONSCIOUSNESS [None]
  - ABNORMAL BEHAVIOUR [None]
  - RENAL FAILURE [None]
  - HYPERTENSION [None]
